FAERS Safety Report 6300252-7 (Version None)
Quarter: 2009Q3

REPORT INFORMATION
  Report Type: 
  Country: None (occurrence: None)
  Receive Date: 20090803
  Receipt Date: 20090720
  Transmission Date: 20100115
  Serious: Yes (Other)
  Sender: FDA-Public Use
  Company Number: 8047175

PATIENT
  Age: 38 Year
  Sex: Male
  Weight: 63 kg

DRUGS (8)
  1. KEPPRA [Suspect]
  2. PHENYTOIN [Suspect]
     Dosage: 100 MG 3/D PO
     Route: 048
     Dates: start: 19960901, end: 20050801
  3. ERGENYL CHRONO [Suspect]
     Dosage: 1000 MG 2/D PO
     Route: 048
     Dates: start: 19960901, end: 20050801
  4. VALIUM [Suspect]
     Indication: CONVULSION
  5. LAMOTRIGINE [Concomitant]
  6. OXYGESIC [Concomitant]
  7. PANTOZOL /01263202 [Concomitant]
  8. KREON /00014701/ [Concomitant]

REACTIONS (6)
  - ASTHENIA [None]
  - DEPRESSION [None]
  - FATIGUE [None]
  - SOCIAL AVOIDANT BEHAVIOUR [None]
  - SOMNOLENCE [None]
  - SUICIDAL IDEATION [None]
